FAERS Safety Report 6263677-4 (Version None)
Quarter: 2009Q3

REPORT INFORMATION
  Report Type: 
  Country: None (occurrence: None)
  Receive Date: 20090708
  Receipt Date: 20090708
  Transmission Date: 20100115
  Serious: No
  Sender: FDA-Public Use
  Company Number: None

PATIENT
  Age: 55 Year
  Sex: Female

DRUGS (2)
  1. ZICAM GEL SWABS 20 MEDICATED WABS ZICAM, SUBSIDIARY OF MATRIXX [Suspect]
     Indication: AGEUSIA
  2. ZICAM GEL SWABS 20 MEDICATED WABS ZICAM, SUBSIDIARY OF MATRIXX [Suspect]
     Indication: ANOSMIA

REACTIONS (1)
  - ANOSMIA [None]
